FAERS Safety Report 4855505-6 (Version None)
Quarter: 2005Q4

REPORT INFORMATION
  Report Type: 
  Country: None (occurrence: None)
  Receive Date: 20051214
  Receipt Date: 20051201
  Transmission Date: 20060501
  Serious: Yes (Hospitalization)
  Sender: FDA-Public Use
  Company Number: 2005-04698

PATIENT
  Age: 39 Year
  Sex: Male
  Weight: 86.2 kg

DRUGS (1)
  1. NICOTINE POLACRILEX [Suspect]
     Indication: SMOKING CESSATION THERAPY
     Dosage: ABOUT 6 PIECES PER DAY,  PRN, BUCCAL
     Route: 002
     Dates: start: 20051103

REACTIONS (1)
  - COMPLICATED MIGRAINE [None]
